FAERS Safety Report 10900768 (Version 2)
Quarter: 2016Q1

REPORT INFORMATION
  Report Type: Spontaneous
  Country: US (occurrence: US)
  Receive Date: 20150310
  Receipt Date: 20160201
  Transmission Date: 20160525
  Serious: No
  Sender: FDA-Public Use
  Company Number: US-PFIZER INC-2014110659

PATIENT
  Age: 66 Year
  Sex: Female

DRUGS (2)
  1. PRISTIQ EXTENDED RELEASE [Suspect]
     Active Substance: DESVENLAFAXINE SUCCINATE
     Dosage: 500 MG, DAILY
  2. PRISTIQ EXTENDED RELEASE [Suspect]
     Active Substance: DESVENLAFAXINE SUCCINATE
     Indication: DEMENTIA ALZHEIMER^S TYPE
     Dosage: 100 MG, FOUR TIMES A DAY (4QAM)

REACTIONS (3)
  - Pre-existing condition improved [Unknown]
  - Overdose [Unknown]
  - Therapeutic response unexpected [Unknown]
